FAERS Safety Report 24165617 (Version 2)
Quarter: 2024Q4

REPORT INFORMATION
  Report Type: Report from Study
  Country: JP (occurrence: JP)
  Receive Date: 20240802
  Receipt Date: 20241228
  Transmission Date: 20250115
  Serious: No
  Sender: RIGEL PHARMACEUTICALS
  Company Number: JP-KISSEI-TL20240193_P_1

PATIENT
  Age: 66 Year
  Sex: Male
  Weight: 84.8 kg

DRUGS (2)
  1. FOSTAMATINIB DISODIUM [Suspect]
     Active Substance: FOSTAMATINIB DISODIUM
     Indication: Immune thrombocytopenia
     Dosage: 100 MG, BID
     Route: 048
     Dates: start: 20240315, end: 20240404
  2. ELTROMBOPAG OLAMINE [Concomitant]
     Active Substance: ELTROMBOPAG OLAMINE
     Indication: Immune thrombocytopenia
     Dosage: 50 MG, QD
     Route: 048
     Dates: end: 20240418

REACTIONS (1)
  - Liver disorder [Recovered/Resolved]

NARRATIVE: CASE EVENT DATE: 20240318
